FAERS Safety Report 17260667 (Version 1)
Quarter: 2020Q1

REPORT INFORMATION
  Report Type: Spontaneous
  Country: IT (occurrence: IT)
  Receive Date: 20200113
  Receipt Date: 20200113
  Transmission Date: 20200409
  Serious: Yes (Other)
  Sender: FDA-Public Use
  Company Number: IT-ABBVIE-19K-083-3197581-00

PATIENT
  Age: 53 Year
  Sex: Female

DRUGS (1)
  1. ADALIMUMAB [Suspect]
     Active Substance: ADALIMUMAB
     Indication: AXIAL SPONDYLOARTHRITIS
     Route: 058
     Dates: start: 20130326, end: 20190905

REACTIONS (1)
  - Pneumonia pseudomonal [Not Recovered/Not Resolved]

NARRATIVE: CASE EVENT DATE: 20190905
